FAERS Safety Report 5127221-7 (Version None)
Quarter: 2006Q4

REPORT INFORMATION
  Report Type: 
  Country: None (occurrence: None)
  Receive Date: 20061010
  Receipt Date: 20061003
  Transmission Date: 20070319
  Serious: Yes (Other)
  Sender: FDA-Public Use
  Company Number: SPV1-2006-00382

PATIENT
  Age: 13 Year
  Sex: Male

DRUGS (2)
  1. DAYTRANA [Suspect]
     Indication: ATTENTION DEFICIT/HYPERACTIVITY DISORDER
     Dosage: 10 MG, TRANSDERMAL
     Route: 062
  2. CONCERTA [Concomitant]

REACTIONS (3)
  - AGGRESSION [None]
  - EYE DISORDER [None]
  - PHYSICAL ASSAULT [None]
